FAERS Safety Report 6034600-2 (Version None)
Quarter: 2009Q1

REPORT INFORMATION
  Report Type: 
  Country: None (occurrence: None)
  Receive Date: 20090112
  Receipt Date: 20090105
  Transmission Date: 20090719
  Serious: Yes (Death)
  Sender: FDA-Public Use
  Company Number: US-MERCK-0901USA00951

PATIENT
  Age: 42 Year
  Sex: Male

DRUGS (6)
  1. DIGOXIN [Suspect]
     Route: 048
  2. COCAINE [Suspect]
     Route: 048
  3. ENALAPRIL MALEATE [Suspect]
     Route: 048
  4. HYDRODIURIL [Suspect]
     Route: 048
  5. CLOPIDOGREL BISULFATE [Suspect]
     Route: 048
  6. ALCOHOL [Suspect]
     Route: 048

REACTIONS (2)
  - COMPLETED SUICIDE [None]
  - OVERDOSE [None]
